FAERS Safety Report 18627391 (Version 1)
Quarter: 2020Q4

REPORT INFORMATION
  Report Type: Report from Study
  Country: CA (occurrence: CA)
  Receive Date: 20201217
  Receipt Date: 20201217
  Transmission Date: 20210114
  Serious: Yes (Other)
  Sender: FDA-Public Use
  Company Number: CA-GLAXOSMITHKLINE-CA2020AMR246248

PATIENT
  Sex: Male

DRUGS (2)
  1. BREO ELLIPTA [Suspect]
     Active Substance: FLUTICASONE FUROATE\VILANTEROL TRIFENATATE
     Indication: PRODUCT USED FOR UNKNOWN INDICATION
     Dosage: UNK
  2. SALBUTAMOL SULPHATE [Suspect]
     Active Substance: ALBUTEROL SULFATE
     Indication: EOSINOPHILIC GRANULOMATOSIS WITH POLYANGIITIS
     Dosage: 100 MG, Z

REACTIONS (8)
  - Biopsy bone marrow [Unknown]
  - Blood count abnormal [Unknown]
  - Loss of personal independence in daily activities [Unknown]
  - Renal injury [Unknown]
  - Laryngeal disorder [Unknown]
  - Nasal polyps [Unknown]
  - Sinusitis [Unknown]
  - Hypoaesthesia [Unknown]
